FAERS Safety Report 4446075-5 (Version None)
Quarter: 2004Q3

REPORT INFORMATION
  Report Type: 
  Country: None (occurrence: None)
  Receive Date: 20040903
  Receipt Date: 20040823
  Transmission Date: 20050211
  Serious: Yes (Other)
  Sender: FDA-Public Use
  Company Number: 2004056962

PATIENT
  Age: 56 Year
  Sex: Male
  Weight: 97.5234 kg

DRUGS (3)
  1. ZYRTEC [Suspect]
     Indication: MULTIPLE ALLERGIES
     Dosage: ORAL
     Route: 048
  2. ZYRTEC-D 12 HOUR [Suspect]
     Indication: MULTIPLE ALLERGIES
     Dosage: (2 IN 1 D), ORAL
     Route: 048
  3. DRIXORAL [Suspect]
     Indication: MULTIPLE ALLERGIES

REACTIONS (2)
  - DIABETES MELLITUS [None]
  - DRUG INEFFECTIVE [None]
